FAERS Safety Report 9167355 (Version 1)
Quarter: 2013Q1

REPORT INFORMATION
  Report Type: Spontaneous
  Country: US (occurrence: None)
  Receive Date: 20130314
  Receipt Date: 20130314
  Transmission Date: 20140127
  Serious: Yes (Hospitalization)
  Sender: FDA-Public Use
  Company Number: None

PATIENT
  Age: 19 Year
  Sex: Female
  Weight: 51 kg

DRUGS (3)
  1. FERRIPROX [Suspect]
     Indication: IRON OVERLOAD
     Route: 048
     Dates: start: 201206, end: 201303
  2. FERRIPROX [Suspect]
     Indication: TRANSFUSION
     Route: 048
     Dates: start: 201206, end: 201303
  3. EXJADE [Concomitant]

REACTIONS (3)
  - Pyrexia [None]
  - Haematuria [None]
  - Device related infection [None]
